FAERS Safety Report 4552804-2 (Version None)
Quarter: 2005Q1

REPORT INFORMATION
  Report Type: 
  Country: None (occurrence: None)
  Receive Date: 20050114
  Receipt Date: 20050104
  Transmission Date: 20050727
  Serious: Yes (Hospitalization)
  Sender: FDA-Public Use
  Company Number: US-ROCHE-391629

PATIENT
  Sex: Female

DRUGS (4)
  1. PEGASYS [Suspect]
     Indication: DRUG USE FOR UNKNOWN INDICATION
     Route: 058
     Dates: end: 20041215
  2. PEGASYS [Suspect]
     Route: 058
     Dates: start: 20050103
  3. COPEGUS [Suspect]
     Indication: DRUG USE FOR UNKNOWN INDICATION
     Route: 048
     Dates: end: 20041215
  4. COPEGUS [Suspect]
     Route: 048
     Dates: start: 20050103

REACTIONS (8)
  - ABDOMINAL PAIN [None]
  - DYSPEPSIA [None]
  - HAEMOGLOBIN DECREASED [None]
  - HEADACHE [None]
  - OXYGEN SATURATION DECREASED [None]
  - PLATELET COUNT DECREASED [None]
  - SPLENOMEGALY [None]
  - TREMOR [None]
